FAERS Safety Report 23295593 (Version 1)
Quarter: 2023Q4

REPORT INFORMATION
  Report Type: Spontaneous
  Country: US (occurrence: US)
  Receive Date: 20231214
  Receipt Date: 20231214
  Transmission Date: 20240110
  Serious: No
  Sender: FDA-Public Use
  Company Number: US-PFIZER INC-202300209148

PATIENT
  Age: 12 Year
  Sex: Male

DRUGS (3)
  1. GENOTROPIN [Suspect]
     Active Substance: SOMATROPIN
     Dosage: 1.1 MG, DAILY ( 7 DAYS PER WEEK)
  2. GENOTROPIN [Suspect]
     Active Substance: SOMATROPIN
     Dosage: ALTERNATE 1.0MG + 1.2MG EVERY OTHER DAY, 7 DAYS PER WEEK
  3. GENOTROPIN [Suspect]
     Active Substance: SOMATROPIN
     Dosage: ALTERNATE 1.0MG + 1.2MG EVERY OTHER DAY, 7 DAYS PER WEEK

REACTIONS (3)
  - Product prescribing error [Unknown]
  - Device breakage [Unknown]
  - Wrong technique in device usage process [Unknown]
